FAERS Safety Report 5678909-0 (Version None)
Quarter: 2008Q1

REPORT INFORMATION
  Report Type: 
  Country: None (occurrence: None)
  Receive Date: 20080325
  Receipt Date: 20080320
  Transmission Date: 20080703
  Serious: Yes (Other)
  Sender: FDA-Public Use
  Company Number: US-ASTRAZENECA-2006UW12157

PATIENT
  Age: 43 Year
  Sex: Female
  Weight: 79.5 kg

DRUGS (2)
  1. SEROQUEL [Suspect]
     Indication: INSOMNIA
     Route: 048
     Dates: start: 19960101, end: 20000101
  2. SEROQUEL [Suspect]
     Indication: DEPRESSION
     Route: 048
     Dates: start: 19960101, end: 20000101

REACTIONS (10)
  - BRONCHITIS [None]
  - CARDIAC OPERATION [None]
  - CHEST INJURY [None]
  - CHRONIC OBSTRUCTIVE PULMONARY DISEASE [None]
  - DIABETES MELLITUS [None]
  - EMPHYSEMA [None]
  - GALLBLADDER DISORDER [None]
  - LUNG NEOPLASM SURGERY [None]
  - NEOPLASM [None]
  - PNEUMONIA [None]
